FAERS Safety Report 17863791 (Version 2)
Quarter: 2020Q3

REPORT INFORMATION
  Report Type: Spontaneous
  Country: US (occurrence: US)
  Receive Date: 20200605
  Receipt Date: 20200713
  Transmission Date: 20201103
  Serious: Yes (Other)
  Sender: FDA-Public Use
  Company Number: US-009507513-2005USA010030

PATIENT
  Age: 10 Year
  Sex: Female

DRUGS (1)
  1. DULERA [Suspect]
     Active Substance: FORMOTEROL FUMARATE DIHYDRATE\MOMETASONE FUROATE
     Indication: CHRONIC RESPIRATORY DISEASE
     Dosage: 2 PUFFS/ TWICE A DAY
     Route: 055
     Dates: start: 2018

REACTIONS (6)
  - Product quality issue [Unknown]
  - Product use in unapproved indication [Unknown]
  - Nocturnal dyspnoea [Not Recovered/Not Resolved]
  - Poor quality device used [Unknown]
  - Product administered to patient of inappropriate age [Unknown]
  - Product use issue [Unknown]

NARRATIVE: CASE EVENT DATE: 2018
